FAERS Safety Report 10913584 (Version 3)
Quarter: 2015Q3

REPORT INFORMATION
  Report Type: Spontaneous
  Country: JP (occurrence: JP)
  Receive Date: 20150313
  Receipt Date: 20150803
  Transmission Date: 20151125
  Serious: Yes (Hospitalization)
  Sender: FDA-Public Use
  Company Number: JP-009507513-1503JPN003931

PATIENT
  Age: 76 Year
  Sex: Male
  Weight: 45 kg

DRUGS (3)
  1. PEGINTRON [Suspect]
     Active Substance: PEGINTERFERON ALFA-2B
     Indication: CHRONIC HEPATITIS C
     Dosage: 60 MICROGRAM, QW
     Route: 058
     Dates: start: 20141203, end: 20150225
  2. REBETOL [Suspect]
     Active Substance: RIBAVIRIN
     Indication: CHRONIC HEPATITIS C
     Dosage: 600 MG, QD, 600 MG A DAY (DIVIDED DOSE TWICE)
     Route: 048
     Dates: start: 20141203, end: 20150304
  3. SIMEPREVIR SODIUM [Suspect]
     Active Substance: SIMEPREVIR SODIUM
     Indication: CHRONIC HEPATITIS C
     Dosage: 100 MG, QD
     Route: 048
     Dates: start: 201412

REACTIONS (3)
  - Decreased appetite [Recovered/Resolved]
  - Hyponatraemia [Recovered/Resolved]
  - Malaise [Recovered/Resolved]

NARRATIVE: CASE EVENT DATE: 20150304
